FAERS Safety Report 9566768 (Version 1)
Quarter: 2013Q3

REPORT INFORMATION
  Report Type: Spontaneous
  Country: US (occurrence: US)
  Receive Date: 20130930
  Receipt Date: 20130930
  Transmission Date: 20140515
  Serious: No
  Sender: FDA-Public Use
  Company Number: US-AMGEN-USASP2012067520

PATIENT
  Age: 45 Year
  Sex: Male
  Weight: 65.76 kg

DRUGS (5)
  1. ENBREL [Suspect]
     Indication: PSORIASIS
     Dosage: 50 MG, QWK
     Route: 058
  2. CLOBETASOL [Concomitant]
     Dosage: 0.05%
  3. BENADRYL ALLERGY                   /00000402/ [Concomitant]
     Dosage: 25 MG, UNK
  4. TYLENOL PM EXTRA STRENGTH [Concomitant]
     Dosage: UNK
  5. ADVIL PM                           /05810501/ [Concomitant]
     Dosage: 200-38 MG

REACTIONS (3)
  - Initial insomnia [Unknown]
  - Malaise [Unknown]
  - Psoriasis [Unknown]
